FAERS Safety Report 10626362 (Version 3)
Quarter: 2015Q1

REPORT INFORMATION
  Report Type: Spontaneous
  Country: US (occurrence: US)
  Receive Date: 20141204
  Receipt Date: 20150206
  Transmission Date: 20150720
  Serious: No
  Sender: FDA-Public Use
  Company Number: US-TEVA-526497USA

PATIENT
  Age: 47 Year
  Sex: Female
  Weight: 56.75 kg

DRUGS (1)
  1. PARAGARD T 380A [Suspect]
     Active Substance: COPPER
     Indication: CONTRACEPTION
     Route: 015
     Dates: start: 201112

REACTIONS (5)
  - Menorrhagia [Recovered/Resolved]
  - Oligomenorrhoea [Not Recovered/Not Resolved]
  - Pelvic pain [Recovered/Resolved]
  - Menstruation irregular [Not Recovered/Not Resolved]
  - Menopause [Not Recovered/Not Resolved]

NARRATIVE: CASE EVENT DATE: 201306
